FAERS Safety Report 4971197-X (Version None)
Quarter: 2006Q1

REPORT INFORMATION
  Report Type: 
  Country: None (occurrence: None)
  Receive Date: 20060216
  Receipt Date: 20050121
  Transmission Date: 20060701
  Serious: Yes (Hospitalization)
  Sender: FDA-Public Use
  Company Number: 2004IM000101

PATIENT
  Age: 39 Year
  Sex: Female
  Weight: 100.2449 kg

DRUGS (14)
  1. INTERFERON GAMMA-1B [Suspect]
     Indication: OVARIAN CANCER
     Dosage: 100 UG, TIW, SUBCUTANEOUS
     Route: 058
     Dates: start: 20031002, end: 20040123
  2. CARBOPLATIN [Suspect]
     Indication: OVARIAN CANCER
     Dosage: SEE IMAGE
     Route: 042
     Dates: start: 20040120, end: 20040120
  3. CARBOPLATIN [Suspect]
     Indication: OVARIAN CANCER
     Dosage: SEE IMAGE
     Route: 042
     Dates: start: 20030930
  4. PACLITAXEL [Suspect]
     Indication: OVARIAN CANCER
     Dosage: SEE IMAGE
     Route: 042
     Dates: end: 20040120
  5. PACLITAXEL [Suspect]
     Indication: OVARIAN CANCER
     Dosage: SEE IMAGE
     Route: 042
     Dates: start: 20030930
  6. DECADRON [Concomitant]
  7. BENADRYL [Concomitant]
  8. ANZEMET [Concomitant]
  9. ZANTAC [Concomitant]
  10. ZOFRAN [Concomitant]
  11. EFFEXOR [Concomitant]
  12. AMBIEN [Concomitant]
  13. REGLAN [Concomitant]
  14. NEXIUM [Concomitant]

REACTIONS (2)
  - NAUSEA [None]
  - VOMITING [None]
